FAERS Safety Report 5964959-3 (Version None)
Quarter: 2008Q4

REPORT INFORMATION
  Report Type: 
  Country: None (occurrence: None)
  Receive Date: 20081124
  Receipt Date: 20081124
  Transmission Date: 20090506
  Serious: Yes (Death)
  Sender: FDA-Public Use
  Company Number: None

PATIENT
  Age: 15 Year
  Sex: Female
  Weight: 49.8957 kg

DRUGS (2)
  1. CELLCEPT [Suspect]
     Indication: SYSTEMIC LUPUS ERYTHEMATOSUS
     Dosage: 500 3TIMES ADAY PO
     Route: 048
     Dates: start: 20070601, end: 20080311
  2. HEPARIN [Suspect]
     Dates: start: 20070601, end: 20080311

REACTIONS (8)
  - ABDOMINAL PAIN [None]
  - ADVERSE DRUG REACTION [None]
  - CARDIAC ARREST [None]
  - INFECTION [None]
  - LEUKOPENIA [None]
  - PANCREATITIS [None]
  - SEPSIS [None]
  - VOMITING [None]
